FAERS Safety Report 7152371-3 (Version None)
Quarter: 2010Q4

REPORT INFORMATION
  Report Type: 
  Country: None (occurrence: None)
  Receive Date: 20101123
  Receipt Date: 20101115
  Transmission Date: 20110411
  Serious: Yes (Death, Life-Threatening, Hospitalization)
  Sender: FDA-Public Use
  Company Number: 108822

PATIENT
  Age: 77 Year
  Sex: Female

DRUGS (1)
  1. ALLOPURINOL [Suspect]
     Indication: HYPERURICAEMIA
     Dosage: 300 MG/DAY

REACTIONS (5)
  - ENTERITIS [None]
  - PROTEUS TEST POSITIVE [None]
  - RENAL FAILURE [None]
  - STAPHYLOCOCCUS TEST POSITIVE [None]
  - TOXIC EPIDERMAL NECROLYSIS [None]
